FAERS Safety Report 7834082-1 (Version None)
Quarter: 2011Q4

REPORT INFORMATION
  Report Type: 
  Country: None (occurrence: None)
  Receive Date: 20111024
  Receipt Date: 20111024
  Transmission Date: 20120403
  Serious: No
  Sender: FDA-Public Use
  Company Number: None

PATIENT
  Age: 29 Year
  Sex: Female
  Weight: 48.534 kg

DRUGS (2)
  1. CYMBALTA [Suspect]
     Indication: FIBROMYALGIA
     Dosage: 30 MG
     Route: 048
  2. CYMBALTA [Suspect]
     Indication: DEPRESSION
     Dosage: 30 MG
     Route: 048

REACTIONS (9)
  - INSOMNIA [None]
  - IRRITABILITY [None]
  - NAUSEA [None]
  - HALLUCINATION, VISUAL [None]
  - VOMITING [None]
  - NIGHTMARE [None]
  - PARAESTHESIA [None]
  - DIZZINESS [None]
  - WITHDRAWAL SYNDROME [None]
